FAERS Safety Report 5706153-7 (Version None)
Quarter: 2008Q2

REPORT INFORMATION
  Report Type: 
  Country: None (occurrence: None)
  Receive Date: 20080415
  Receipt Date: 20080403
  Transmission Date: 20081010
  Serious: Yes (Other)
  Sender: FDA-Public Use
  Company Number: US-PFIZER INC-2008029608

PATIENT
  Sex: Female

DRUGS (4)
  1. LYRICA [Suspect]
  2. AMITRIPTYLINE HCL [Suspect]
  3. HYDROCODONE BITARTRATE [Suspect]
  4. KLONOPIN [Suspect]

REACTIONS (2)
  - LEGAL PROBLEM [None]
  - ROAD TRAFFIC ACCIDENT [None]
